FAERS Safety Report 12421367 (Version 2)
Quarter: 2017Q1

REPORT INFORMATION
  Report Type: Spontaneous
  Country: US (occurrence: US)
  Receive Date: 20160531
  Receipt Date: 20170109
  Transmission Date: 20170428
  Serious: No
  Sender: FDA-Public Use
  Company Number: US-CELGENEUS-USA-2016055424

PATIENT
  Age: 46 Year
  Sex: Male

DRUGS (6)
  1. HUMIRA [Concomitant]
     Active Substance: ADALIMUMAB
     Indication: PSORIASIS
     Dosage: 40MG
     Route: 065
     Dates: start: 20160417
  2. DOXYCYCLINE. [Concomitant]
     Active Substance: DOXYCYCLINE
     Indication: BRONCHITIS
     Dosage: 100MG
     Route: 065
     Dates: start: 20151214, end: 20151221
  3. OTEZLA [Suspect]
     Active Substance: APREMILAST
     Indication: PSORIATIC ARTHROPATHY
     Dosage: 60MG
     Route: 048
     Dates: start: 20151117, end: 20160318
  4. PREDNISONE. [Concomitant]
     Active Substance: PREDNISONE
     Indication: BRONCHITIS
     Dosage: 20MG
     Route: 065
     Dates: start: 20151214, end: 20151219
  5. OTEZLA [Suspect]
     Active Substance: APREMILAST
     Indication: PSORIASIS
  6. CHERATOSSIN AC [Concomitant]
     Indication: BRONCHITIS
     Route: 065
     Dates: start: 20151214

REACTIONS (4)
  - Nausea [Recovered/Resolved]
  - Depression [Recovered/Resolved]
  - Headache [Recovered/Resolved]
  - Abdominal pain upper [Recovered/Resolved]

NARRATIVE: CASE EVENT DATE: 20151130
